FAERS Safety Report 5718708-4 (Version None)
Quarter: 2008Q2

REPORT INFORMATION
  Report Type: 
  Country: None (occurrence: None)
  Receive Date: 20080423
  Receipt Date: 20080417
  Transmission Date: 20081010
  Serious: Yes (Death, Hospitalization, Other)
  Sender: FDA-Public Use
  Company Number: 055-C5013-07030317

PATIENT
  Age: 68 Year
  Sex: Female
  Weight: 69 kg

DRUGS (14)
  1. CC-5013 (LENALIDOMIDE) (CAPSULES) [Suspect]
     Indication: MYELODYSPLASTIC SYNDROME
     Dosage: 10 MG, 3 WEEKS PER CYCLE, PER ORAL
     Route: 048
  2. LIPITOR [Concomitant]
  3. PRIMASPAN (ACETYLSALICYLIC ACID) [Concomitant]
  4. ORMOX (ISOSORBIDE MONONITRATE) [Concomitant]
  5. EMCONCOR (BISOPROLOL) [Concomitant]
  6. FOSAMAX [Concomitant]
  7. ASPERIN (ACETYLSALICYLIC ACID) [Concomitant]
  8. RAMIPRIL [Concomitant]
  9. SIMVASTATIN RATIOPHARM (SIMVASTATIN) [Concomitant]
  10. SERETIDE DISKUS (SERETIDE MITE) [Concomitant]
  11. BISOPROLOL ACTAVIS (BISOPROLOL) [Concomitant]
  12. KALCIPOS (CALCIUM CARBONATE) [Concomitant]
  13. KALCIPOS-D (LEKOVIT CA) [Concomitant]
  14. NITROGLYCERIN [Concomitant]

REACTIONS (7)
  - ANAEMIA [None]
  - CORONARY ARTERY DISEASE [None]
  - DEEP VEIN THROMBOSIS [None]
  - DIARRHOEA [None]
  - MYOCARDIAL INFARCTION [None]
  - NAUSEA [None]
  - TENSION [None]
